FAERS Safety Report 7942169-8 (Version None)
Quarter: 2011Q4

REPORT INFORMATION
  Report Type: 
  Country: None (occurrence: None)
  Receive Date: 20111122
  Receipt Date: 20111110
  Transmission Date: 20120403
  Serious: Yes (Death)
  Sender: FDA-Public Use
  Company Number: 2011MA016502

PATIENT
  Age: 63 Year
  Sex: Female

DRUGS (2)
  1. RISPERIDONE [Suspect]
  2. RISPERDAL CONSTA [Suspect]
     Dosage: 37.5 MG;IM
     Route: 030

REACTIONS (1)
  - CEREBRAL HAEMORRHAGE [None]
